FAERS Safety Report 7357726-X (Version None)
Quarter: 2011Q1

REPORT INFORMATION
  Report Type: 
  Country: None (occurrence: None)
  Receive Date: 20110314
  Receipt Date: 20110314
  Transmission Date: 20110831
  Serious: No
  Sender: FDA-Public Use
  Company Number: None

PATIENT
  Age: 78 Year
  Sex: Female
  Weight: 77.5651 kg

DRUGS (4)
  1. GEMFIBROZIL [Suspect]
     Dosage: 600MG 1 QD PO
     Route: 048
  2. FUROSEMIDE 20MG DAILY PO [Suspect]
     Dosage: 20MG DAILY PO
     Route: 048
  3. ENALAPRIL 10MG DAY PO [Suspect]
     Dosage: 10MG DAY PO
     Route: 048
  4. VERAPAMIL [Suspect]
     Dosage: PO
     Route: 048

REACTIONS (9)
  - ARTHRALGIA [None]
  - HEADACHE [None]
  - FLUID RETENTION [None]
  - PRODUCT SUBSTITUTION ISSUE [None]
  - OEDEMA PERIPHERAL [None]
  - HYPERSENSITIVITY [None]
  - RENAL IMPAIRMENT [None]
  - MYALGIA [None]
  - KIDNEY INFECTION [None]
